FAERS Safety Report 8863086 (Version 1)
Quarter: 2012Q4

REPORT INFORMATION
  Report Type: 
  Country: FR (occurrence: FR)
  Receive Date: 20121026
  Receipt Date: 20121026
  Transmission Date: 20130627
  Serious: Yes (Hospitalization)
  Sender: FDA-Public Use
  Company Number: PHHY2012FR095910

PATIENT
  Sex: Female

DRUGS (6)
  1. TEGRETOL [Suspect]
     Dosage: 1 DF, BID
     Route: 048
     Dates: start: 20120919, end: 20120924
  2. ZELITREX [Suspect]
     Dosage: 2 DF, TID
     Dates: start: 20120917, end: 20120924
  3. IXPRIM [Suspect]
     Dosage: 2 DF, four times per day
     Dates: start: 20120917, end: 20120924
  4. COVERSYL [Concomitant]
  5. BEFIZAL [Concomitant]
  6. PLAVIX [Concomitant]

REACTIONS (6)
  - Fall [Recovered/Resolved]
  - Rhabdomyolysis [Recovered/Resolved]
  - Injury [Unknown]
  - Periorbital haematoma [Unknown]
  - Atrioventricular block first degree [Unknown]
  - Confusional state [Recovered/Resolved]
